FAERS Safety Report 14520192 (Version 2)
Quarter: 2018Q1

REPORT INFORMATION
  Report Type: Spontaneous
  Country: TW (occurrence: TW)
  Receive Date: 20180212
  Receipt Date: 20180215
  Transmission Date: 20180509
  Serious: Yes (Death, Life-Threatening, Other)
  Sender: FDA-Public Use
  Company Number: TW-PFIZER INC-2018061390

PATIENT
  Age: 7 Month
  Sex: Female

DRUGS (9)
  1. NYSTATIN. [Concomitant]
     Active Substance: NYSTATIN
     Indication: FEBRILE NEUTROPENIA
     Dosage: UNK (ADEQUATE DOSAGE)
  2. MEROPENEM. [Suspect]
     Active Substance: MEROPENEM
     Indication: FEBRILE NEUTROPENIA
     Dosage: UNK
  3. VANCOMYCIN HCL [Suspect]
     Active Substance: VANCOMYCIN HYDROCHLORIDE
     Indication: FEBRILE NEUTROPENIA
     Dosage: UNK
  4. NYSTATIN. [Concomitant]
     Active Substance: NYSTATIN
     Indication: MUCORMYCOSIS
  5. CYTOSAR [Suspect]
     Active Substance: CYTARABINE
     Indication: ACUTE MYELOID LEUKAEMIA
     Dosage: 100 MG/M2, 1X/DAY (FOR 7 DAYS)
     Route: 041
     Dates: start: 20121108
  6. FLUCONAZOLE. [Concomitant]
     Active Substance: FLUCONAZOLE
     Indication: MUCORMYCOSIS
  7. IDARUBICIN HCL [Suspect]
     Active Substance: IDARUBICIN HYDROCHLORIDE
     Indication: ACUTE MYELOID LEUKAEMIA
     Dosage: 9 MG/M2, 1X/DAY (FOR 3 DAYS)
     Dates: start: 20121108
  8. GRANULOCYTE COLONY STIMULATING FACTOR [Concomitant]
     Active Substance: GRANULOCYTE COLONY-STIMULATING FACTOR NOS
     Indication: FEBRILE NEUTROPENIA
     Dosage: 5 UG/KG, 1X/DAY
  9. FLUCONAZOLE. [Concomitant]
     Active Substance: FLUCONAZOLE
     Indication: FEBRILE NEUTROPENIA
     Dosage: 5 MG/KG, 1X/DAY (ADEQUATE DOSAGE)
     Route: 048

REACTIONS (9)
  - Ascites [Unknown]
  - Abdominal mass [Unknown]
  - Tachycardia [Recovered/Resolved]
  - Mesenteric arterial occlusion [Unknown]
  - Renal artery occlusion [Unknown]
  - Mucormycosis [Fatal]
  - Splenic infarction [Unknown]
  - Intestinal obstruction [Unknown]
  - Hypertension [Recovered/Resolved]
